FAERS Safety Report 24419519 (Version 2)
Quarter: 2024Q4

REPORT INFORMATION
  Report Type: Spontaneous
  Country: NL (occurrence: NL)
  Receive Date: 20241010
  Receipt Date: 20241018
  Transmission Date: 20250115
  Serious: No
  Sender: ROCHE
  Company Number: None

PATIENT
  Sex: Female

DRUGS (1)
  1. ALTEPLASE [Suspect]
     Active Substance: ALTEPLASE
     Indication: Thrombosis
     Dosage: 25 HOUR INFUSION
     Route: 065
     Dates: start: 20230228

REACTIONS (3)
  - Maternal exposure during pregnancy [Unknown]
  - Nausea [Recovered/Resolved]
  - Vomiting [Recovered/Resolved]
